FAERS Safety Report 8658930 (Version 2)
Quarter: 2012Q4

REPORT INFORMATION
  Report Type: Report from Study
  Country: JP (occurrence: JP)
  Receive Date: 20120710
  Receipt Date: 20120912
  Transmission Date: 20130627
  Serious: Yes (Death)
  Sender: FDA-Public Use
  Company Number: JP-JNJFOC-20120703915

PATIENT
  Age: 55 Year
  Sex: Male

DRUGS (5)
  1. STELARA [Suspect]
     Indication: PSORIASIS
     Route: 058
     Dates: start: 20120217, end: 20120217
  2. STEROIDS NOS [Concomitant]
  3. TAKEPRON [Concomitant]
     Route: 048
  4. ANPLAG [Concomitant]
     Route: 048
  5. PANALDINE [Concomitant]
     Route: 048

REACTIONS (1)
  - Completed suicide [Fatal]
